FAERS Safety Report 15949227 (Version 1)
Quarter: 2019Q1

REPORT INFORMATION
  Report Type: Spontaneous
  Country: EG (occurrence: EG)
  Receive Date: 20190212
  Receipt Date: 20190212
  Transmission Date: 20190417
  Serious: Yes (Death, Other)
  Sender: FDA-Public Use
  Company Number: EG-SA-2019SA039790

PATIENT
  Age: 3 Year
  Sex: Female
  Weight: 9.5 kg

DRUGS (1)
  1. CEREZYME [Suspect]
     Active Substance: IMIGLUCERASE
     Indication: GAUCHER^S DISEASE TYPE III
     Dosage: 60 /KG, FOR 2 WEEKS
     Route: 041
     Dates: start: 20170510, end: 20181009

REACTIONS (5)
  - Multi-organ disorder [Fatal]
  - Haemorrhage [Fatal]
  - Condition aggravated [Fatal]
  - Anaemia [Fatal]
  - Pancytopenia [Fatal]
